FAERS Safety Report 6929709-2 (Version None)
Quarter: 2010Q3

REPORT INFORMATION
  Report Type: 
  Country: None (occurrence: None)
  Receive Date: 20100813
  Receipt Date: 20100729
  Transmission Date: 20110219
  Serious: Yes (Hospitalization)
  Sender: FDA-Public Use
  Company Number: 2010BI027496

PATIENT
  Age: 49 Year
  Sex: Male

DRUGS (6)
  1. ZEVALIN [Suspect]
     Indication: B-CELL LYMPHOMA
     Dosage: 1X;IV
     Route: 042
     Dates: start: 20100305, end: 20100305
  2. RITUXIMAB [Concomitant]
  3. CYCLOPHOSPHAMIDE [Concomitant]
  4. VINCRISTINE [Concomitant]
  5. DOXORUBICIN HCL [Concomitant]
  6. PREDNISONE [Concomitant]

REACTIONS (2)
  - DEMYELINATION [None]
  - PARAESTHESIA [None]
